FAERS Safety Report 6147854-9 (Version None)
Quarter: 2009Q2

REPORT INFORMATION
  Report Type: 
  Country: None (occurrence: None)
  Receive Date: 20090402
  Receipt Date: 20090320
  Transmission Date: 20091009
  Serious: Yes (Other)
  Sender: FDA-Public Use
  Company Number: 2009S1000017

PATIENT
  Age: 27 Year
  Sex: Female

DRUGS (1)
  1. ACITRETIN [Suspect]
     Indication: SKIN PAPILLOMA
     Dosage: 1 DF, QD; PO
     Route: 048
     Dates: start: 20080508, end: 20080515

REACTIONS (4)
  - AMNIORRHEXIS [None]
  - CAESAREAN SECTION [None]
  - DRUG EXPOSURE DURING PREGNANCY [None]
  - PREGNANCY [None]
